FAERS Safety Report 14137892 (Version 2)
Quarter: 2018Q1

REPORT INFORMATION
  Report Type: Spontaneous
  Country: GB (occurrence: GB)
  Receive Date: 20171027
  Receipt Date: 20180111
  Transmission Date: 20180508
  Serious: Yes (Other)
  Sender: FDA-Public Use
  Company Number: GB-AMGEN-GBRSP2017160550

PATIENT
  Age: 74 Year
  Sex: Female
  Weight: 64.5 kg

DRUGS (1)
  1. PROLIA [Suspect]
     Active Substance: DENOSUMAB
     Indication: PRODUCT USED FOR UNKNOWN INDICATION
     Dosage: UNK
     Route: 065
     Dates: start: 2014

REACTIONS (3)
  - Joint dislocation [Unknown]
  - Tooth disorder [Unknown]
  - Ligament sprain [Recovered/Resolved]
